FAERS Safety Report 6887081-0 (Version None)
Quarter: 2010Q3

REPORT INFORMATION
  Report Type: 
  Country: None (occurrence: None)
  Receive Date: 20100730
  Receipt Date: 20100726
  Transmission Date: 20110219
  Serious: Yes (Death)
  Sender: FDA-Public Use
  Company Number: US-GILEAD-2010-0030468

PATIENT
  Sex: Female
  Weight: 115.77 kg

DRUGS (16)
  1. LETAIRIS [Suspect]
     Indication: PULMONARY ARTERIAL HYPERTENSION
     Route: 048
  2. COUMADIN [Concomitant]
  3. OXYGEN [Concomitant]
  4. LORAZEPAM [Concomitant]
  5. PREDNISONE [Concomitant]
  6. COLACE [Concomitant]
  7. OMEPRAZOLE [Concomitant]
  8. SPIRIVA [Concomitant]
  9. ESTRADIOL [Concomitant]
  10. FLEXERIL [Concomitant]
  11. PROZAC [Concomitant]
  12. ZOLOFT [Concomitant]
  13. OYSTER SHELL [Concomitant]
  14. POTASSIUM [Concomitant]
  15. ASCORBIC ACID [Concomitant]
  16. VITAMIN D [Concomitant]

REACTIONS (2)
  - IDIOPATHIC PULMONARY FIBROSIS [None]
  - RESPIRATORY FAILURE [None]
